FAERS Safety Report 16720047 (Version 1)
Quarter: 2019Q3

REPORT INFORMATION
  Report Type: Spontaneous
  Country: DE (occurrence: DE)
  Receive Date: 20190820
  Receipt Date: 20190820
  Transmission Date: 20191005
  Serious: Yes (Hospitalization)
  Sender: FDA-Public Use
  Company Number: DE-TEVA-2019-DE-1093213

PATIENT
  Age: 76 Year
  Sex: Male

DRUGS (8)
  1. METOPROLOL. [Suspect]
     Active Substance: METOPROLOL
     Dosage: 47.5 MG, 1-0-1-0
  2. ISDN [Concomitant]
     Dosage: 40 MG, 1-1-0-0
  3. ASS 100 [Concomitant]
     Active Substance: ASPIRIN
     Dosage: 100 MG, NK
  4. FUROSEMIDE. [Suspect]
     Active Substance: FUROSEMIDE
     Dosage: 40 MG, 1-1-0-0
  5. ALLOPURINOL. [Concomitant]
     Active Substance: ALLOPURINOL
     Dosage: 100 MG, 0-1-0-0
  6. SIMVASTATIN. [Concomitant]
     Active Substance: SIMVASTATIN
     Dosage: 20 MG, 0-0-1-0
  7. KALIUM [Concomitant]
     Active Substance: POTASSIUM CHLORIDE
     Dosage: NK MG, DEMAND, EFFERVESCENT TABLETS
  8. RAMIPRIL. [Concomitant]
     Active Substance: RAMIPRIL
     Dosage: 5 MG, 1-0-1-0

REACTIONS (5)
  - Amnesia [Unknown]
  - Arrhythmia [Unknown]
  - Hypotension [Unknown]
  - Syncope [Unknown]
  - Bradycardia [Unknown]
